FAERS Safety Report 18198228 (Version 1)
Quarter: 2020Q3

REPORT INFORMATION
  Report Type: Spontaneous
  Country: US (occurrence: US)
  Receive Date: 20200826
  Receipt Date: 20200826
  Transmission Date: 20201103
  Serious: No
  Sender: FDA-Public Use
  Company Number: US-BAYER-2020-176703

PATIENT
  Sex: Female

DRUGS (3)
  1. CLARITIN LIQUI?GELS [Suspect]
     Active Substance: LORATADINE
     Indication: NASOPHARYNGITIS
  2. CLARITIN LIQUI?GELS [Suspect]
     Active Substance: LORATADINE
     Indication: HYPERSENSITIVITY
     Route: 048
     Dates: start: 20200819, end: 20200823
  3. TYLENOL PM [Concomitant]
     Active Substance: ACETAMINOPHEN\DIPHENHYDRAMINE

REACTIONS (1)
  - Insomnia [Unknown]
